FAERS Safety Report 6673159-3 (Version None)
Quarter: 2010Q2

REPORT INFORMATION
  Report Type: 
  Country: None (occurrence: None)
  Receive Date: 20100408
  Receipt Date: 20100331
  Transmission Date: 20101027
  Serious: Yes (Hospitalization)
  Sender: FDA-Public Use
  Company Number: JP-ASTRAZENECA-2009SE20830

PATIENT
  Age: 76 Year
  Sex: Female
  Weight: 43 kg

DRUGS (7)
  1. DIPRIVAN [Suspect]
     Indication: SEDATION
     Dosage: 60 MG; 20-40 MG/KG/HR
     Route: 042
     Dates: start: 20090917, end: 20090917
  2. DEPAS [Suspect]
     Dosage: DOSE UNKNOWN
  3. BIOFERMIN [Suspect]
     Dosage: DOSE UNKNOWN
  4. MAGNESIUM OXIDE [Suspect]
     Dosage: DOSE UNKNOWN
  5. PURSENNID [Suspect]
     Dosage: DOSE UNKNOWN
  6. REMINARON [Concomitant]
     Dosage: DOSE UNKNOWN
     Route: 042
     Dates: start: 20090917
  7. OPYSTAN [Concomitant]
     Indication: SEDATION
     Route: 042
     Dates: start: 20090917, end: 20090917

REACTIONS (1)
  - HEPATIC FUNCTION ABNORMAL [None]
